FAERS Safety Report 5335794-4 (Version None)
Quarter: 2007Q1

REPORT INFORMATION
  Report Type: 
  Country: None (occurrence: None)
  Receive Date: 20070322
  Receipt Date: 20061101
  Transmission Date: 20070707
  Serious: Yes (Hospitalization, Other)
  Sender: FDA-Public Use
  Company Number: US-CVT-062225

PATIENT
  Age: 88 Year
  Sex: Male
  Weight: 73.5 kg

DRUGS (11)
  1. RANEXA [Suspect]
     Indication: ANGINA PECTORIS
     Dosage: 500 MG, BID, ORAL
     Route: 048
     Dates: start: 20061018, end: 20061021
  2. IMDUR [Concomitant]
  3. LISINOPRIL /00894001/ (LISINOPRIL) [Concomitant]
  4. COUMADIN [Concomitant]
  5. TOPROL-XL [Concomitant]
  6. SIMVASTATIN [Concomitant]
  7. PROZAC [Concomitant]
  8. VITAMIN B [Concomitant]
  9. FOLIC ACID [Concomitant]
  10. MVI (VITAMINS NOS) [Concomitant]
  11. LASIX [Concomitant]

REACTIONS (3)
  - CARDIAC FAILURE [None]
  - DYSPNOEA [None]
  - ELECTROCARDIOGRAM QT CORRECTED INTERVAL PROLONGED [None]
